FAERS Safety Report 6604023-3 (Version None)
Quarter: 2010Q1

REPORT INFORMATION
  Report Type: 
  Country: None (occurrence: None)
  Receive Date: 20100226
  Receipt Date: 20090416
  Transmission Date: 20100710
  Serious: No
  Sender: FDA-Public Use
  Company Number: A0779207A

PATIENT
  Age: 44 Year
  Sex: Female

DRUGS (2)
  1. LAMICTAL CD [Suspect]
     Dosage: 50MG PER DAY
     Route: 048
     Dates: start: 20090301
  2. KLONOPIN [Concomitant]

REACTIONS (4)
  - ANGER [None]
  - ANXIETY [None]
  - IRRITABILITY [None]
  - PALPITATIONS [None]
